FAERS Safety Report 5570298-5 (Version None)
Quarter: 2007Q4

REPORT INFORMATION
  Report Type: 
  Country: None (occurrence: None)
  Receive Date: 20071219
  Receipt Date: 20071219
  Transmission Date: 20080405
  Serious: Yes (Hospitalization)
  Sender: FDA-Public Use
  Company Number: None

PATIENT
  Sex: Male
  Weight: 113.5 kg

DRUGS (5)
  1. CYCLOPHOSPHAMIDE [Suspect]
     Dosage: 3050 MG
     Dates: start: 20070316, end: 20071009
  2. DAUNORUBICIN HCL [Suspect]
     Dosage: 600 MG
     Dates: end: 20071011
  3. DEXAMETHASONE TAB [Suspect]
     Dosage: 156 MG
     Dates: end: 20071015
  4. L-ASPARAGINASE [Suspect]
     Dosage: 60640 UNIT
     Dates: end: 20071102
  5. VINCRISTINE SULFATE [Suspect]
     Dosage: 8 MG
     Dates: end: 20071115

REACTIONS (3)
  - BLOOD CULTURE POSITIVE [None]
  - NAUSEA [None]
  - STAPHYLOCOCCAL INFECTION [None]
